FAERS Safety Report 14094592 (Version 1)
Quarter: 2017Q4

REPORT INFORMATION
  Report Type: Spontaneous
  Country: ID (occurrence: ID)
  Receive Date: 20171016
  Receipt Date: 20171016
  Transmission Date: 20180321
  Serious: Yes (Death, Hospitalization)
  Sender: FDA-Public Use
  Company Number: PHHY2017ID149957

PATIENT
  Sex: Female

DRUGS (5)
  1. UPERIO [Suspect]
     Active Substance: SACUBITRIL\VALSARTAN
     Indication: CARDIAC FAILURE CONGESTIVE
     Dosage: 50 MG, BID
     Route: 065
     Dates: start: 20171002
  2. FUROSEMIDE. [Concomitant]
     Active Substance: FUROSEMIDE
     Indication: GENERALISED OEDEMA
  3. UPERIO [Suspect]
     Active Substance: SACUBITRIL\VALSARTAN
     Indication: GENERALISED OEDEMA
  4. FUROSEMIDE. [Concomitant]
     Active Substance: FUROSEMIDE
     Indication: CARDIAC FAILURE CONGESTIVE
     Route: 065
  5. HCT [Concomitant]
     Active Substance: HYDROCHLOROTHIAZIDE
     Indication: PRODUCT USED FOR UNKNOWN INDICATION
     Route: 065

REACTIONS (11)
  - Asthenia [Fatal]
  - Acute kidney injury [Fatal]
  - Generalised oedema [Fatal]
  - Diabetes mellitus [Fatal]
  - Blood creatinine increased [Fatal]
  - Septic shock [Fatal]
  - Cardiac failure congestive [Fatal]
  - Infection [Unknown]
  - Dyspnoea [Fatal]
  - Pulmonary hypertension [Fatal]
  - Creatinine renal clearance increased [Unknown]
